FAERS Safety Report 15409041 (Version 1)
Quarter: 2018Q3

REPORT INFORMATION
  Report Type: Spontaneous
  Country: CA (occurrence: CA)
  Receive Date: 20180920
  Receipt Date: 20180920
  Transmission Date: 20181010
  Serious: Yes (Other)
  Sender: FDA-Public Use
  Company Number: CA-JNJFOC-20180920472

PATIENT
  Sex: Male

DRUGS (3)
  1. EMTRICITABINE W/TENOFOVIR [Concomitant]
     Active Substance: EMTRICITABINE\TENOFOVIR DISOPROXIL
     Route: 065
  2. ELVITEGRAVIR [Interacting]
     Active Substance: ELVITEGRAVIR
     Indication: HIV INFECTION
     Route: 065
  3. XARELTO [Suspect]
     Active Substance: RIVAROXABAN
     Indication: ANTICOAGULANT THERAPY
     Route: 048

REACTIONS (2)
  - Lower limb fracture [Unknown]
  - Drug interaction [Recovered/Resolved]
